FAERS Safety Report 8482897-1 (Version None)
Quarter: 2012Q2

REPORT INFORMATION
  Report Type: 
  Country: None (occurrence: None)
  Receive Date: 20120625
  Receipt Date: 20120608
  Transmission Date: 20120825
  Serious: Yes (Other)
  Sender: FDA-Public Use
  Company Number: 2012-00856

PATIENT
  Age: 40 Year
  Sex: Female

DRUGS (1)
  1. SERTRALINE HYDROCHLORIDE [Suspect]
     Indication: DEPRESSION
     Dosage: 25 MG (DAILY)
     Dates: start: 20120101

REACTIONS (6)
  - PROGESTERONE DECREASED [None]
  - ENDOCRINE DISORDER [None]
  - DEPRESSION [None]
  - ADRENAL INSUFFICIENCY [None]
  - AMENORRHOEA [None]
  - ANOVULATORY CYCLE [None]
